FAERS Safety Report 25680918 (Version 2)
Quarter: 2025Q4

REPORT INFORMATION
  Report Type: Spontaneous
  Country: US (occurrence: US)
  Receive Date: 20250814
  Receipt Date: 20251010
  Transmission Date: 20260117
  Serious: Yes (Congenital Anomaly, Other)
  Sender: TEVA
  Company Number: US-TEVA-VS-3360489

PATIENT
  Age: 0 Day
  Sex: Female
  Weight: 2.5 kg

DRUGS (10)
  1. ACETAMINOPHEN\BUTALBITAL\CAFFEINE [Suspect]
     Active Substance: ACETAMINOPHEN\BUTALBITAL\CAFFEINE
     Indication: Migraine
     Dosage: TIME INTERVAL: AS NECESSARY: PRN, FIORICET
     Route: 064
  2. NURTEC ODT [Suspect]
     Active Substance: RIMEGEPANT SULFATE
     Indication: Migraine
     Dosage: TIME INTERVAL: AS NECESSARY: PO, PRN
     Route: 064
     Dates: start: 202406
  3. EXCEDRIN MIGRAINE [Suspect]
     Active Substance: ACETAMINOPHEN\ASPIRIN\CAFFEINE
     Indication: Migraine
     Dosage: TIME INTERVAL: AS NECESSARY: 1-4, PRN
     Route: 064
  4. RELPAX [Suspect]
     Active Substance: ELETRIPTAN HYDROBROMIDE
     Indication: Migraine
     Dosage: TIME INTERVAL: AS NECESSARY: PRN
     Route: 064
     Dates: start: 2013
  5. TRAMADOL [Suspect]
     Active Substance: TRAMADOL
     Indication: Migraine
     Dosage: TIME INTERVAL: AS NECESSARY: PRN
     Route: 064
     Dates: start: 201411
  6. TYLENOL [Suspect]
     Active Substance: ACETAMINOPHEN
     Indication: Migraine
     Dosage: TIME INTERVAL: AS NECESSARY: PRN
     Route: 064
  7. TYLENOL [Suspect]
     Active Substance: ACETAMINOPHEN
     Indication: Migraine
     Dosage: TIME INTERVAL: AS NECESSARY: 2600-3900 MG
     Route: 064
  8. FENTANYL [Suspect]
     Active Substance: FENTANYL
     Indication: Migraine
     Dosage: TIME INTERVAL: AS NECESSARY: PRN
     Route: 064
  9. ZOFRAN [Suspect]
     Active Substance: ONDANSETRON HYDROCHLORIDE
     Indication: Migraine
     Dosage: TIME INTERVAL: AS NECESSARY: PRN
     Route: 064
  10. BENADRYL [Suspect]
     Active Substance: DIPHENHYDRAMINE HYDROCHLORIDE
     Indication: Migraine
     Dosage: TIME INTERVAL: AS NECESSARY: PRN
     Route: 064

REACTIONS (3)
  - Trisomy 13 [Recovered/Resolved]
  - Foetal exposure timing unspecified [Unknown]
  - Premature baby [Unknown]

NARRATIVE: CASE EVENT DATE: 20250505
